FAERS Safety Report 15632339 (Version 3)
Quarter: 2018Q4

REPORT INFORMATION
  Report Type: Spontaneous
  Country: SE (occurrence: SE)
  Receive Date: 20181119
  Receipt Date: 20181210
  Transmission Date: 20190205
  Serious: Yes (Life-Threatening, Hospitalization)
  Sender: FDA-Public Use
  Company Number: SE-JNJFOC-20181122708

PATIENT
  Age: 62 Year
  Sex: Male

DRUGS (6)
  1. KYPROLIS [Concomitant]
     Active Substance: CARFILZOMIB
  2. DARZALEX [Suspect]
     Active Substance: DARATUMUMAB
     Indication: PLASMA CELL MYELOMA
     Route: 042
     Dates: start: 201611
  3. CALCIUM [Concomitant]
     Active Substance: CALCIUM
  4. DARZALEX [Suspect]
     Active Substance: DARATUMUMAB
     Indication: PLASMA CELL MYELOMA
     Dosage: WEEK 45
     Route: 042
     Dates: end: 20181114
  5. ACYCLOVIR. [Concomitant]
     Active Substance: ACYCLOVIR
  6. CIALIS [Concomitant]
     Active Substance: TADALAFIL
     Indication: ERECTILE DYSFUNCTION

REACTIONS (5)
  - Thrombotic thrombocytopenic purpura [Not Recovered/Not Resolved]
  - Renal failure [Not Recovered/Not Resolved]
  - Malaise [Not Recovered/Not Resolved]
  - Platelet count decreased [Not Recovered/Not Resolved]
  - Urine output decreased [Not Recovered/Not Resolved]

NARRATIVE: CASE EVENT DATE: 20181114
